FAERS Safety Report 22094842 (Version 1)
Quarter: 2023Q1

REPORT INFORMATION
  Report Type: Spontaneous
  Country: CA (occurrence: CA)
  Receive Date: 20230314
  Receipt Date: 20230314
  Transmission Date: 20230418
  Serious: Yes (Death, Other)
  Sender: FDA-Public Use
  Company Number: CA-ELI_LILLY_AND_COMPANY-CA202303005783

PATIENT
  Age: 24 Year
  Sex: Male

DRUGS (5)
  1. OLANZAPINE [Suspect]
     Active Substance: OLANZAPINE
     Indication: Psychotic symptom
     Dosage: 1 DOSAGE FORM, DAILY
     Route: 065
  2. ABILIFY MAINTENA [Suspect]
     Active Substance: ARIPIPRAZOLE
     Indication: Psychotic symptom
     Dosage: 400 MG, DAILY
     Route: 030
  3. QUETIAPINE FUMARATE [Suspect]
     Active Substance: QUETIAPINE FUMARATE
     Indication: Insomnia
     Dosage: 100 MG, UNKNOWN
     Route: 048
  4. ZUCLOPENTHIXOL ACETATE [Suspect]
     Active Substance: ZUCLOPENTHIXOL ACETATE
     Indication: Mental disorder
     Dosage: UNK UNK, UNKNOWN
     Route: 065
  5. LORAZEPAM [Concomitant]
     Active Substance: LORAZEPAM
     Indication: Product used for unknown indication

REACTIONS (11)
  - Accidental death [Fatal]
  - Acute pulmonary oedema [Fatal]
  - Cardiac failure [Unknown]
  - Iatrogenic injury [Unknown]
  - Paradoxical drug reaction [Unknown]
  - Inappropriate schedule of product administration [Unknown]
  - Product dose omission issue [Unknown]
  - Arrhythmia [Unknown]
  - Ventricular arrhythmia [Unknown]
  - Prescribed overdose [Unknown]
  - Therapeutic product effect incomplete [Unknown]
